FAERS Safety Report 4373303-7 (Version None)
Quarter: 2004Q2

REPORT INFORMATION
  Report Type: 
  Country: None (occurrence: None)
  Receive Date: 20040603
  Receipt Date: 20040519
  Transmission Date: 20050107
  Serious: Yes (Death, Other)
  Sender: FDA-Public Use
  Company Number: USA040568088

PATIENT
  Sex: Female

DRUGS (1)
  1. ILETIN [Suspect]
     Indication: DIABETES MELLITUS

REACTIONS (8)
  - DIABETIC NEUROPATHY [None]
  - DIALYSIS [None]
  - DRUG HYPERSENSITIVITY [None]
  - ERYTHEMA [None]
  - MULTI-ORGAN FAILURE [None]
  - PALPITATIONS [None]
  - RENAL FAILURE [None]
  - VOMITING [None]
